FAERS Safety Report 22011137 (Version 1)
Quarter: 2023Q1

REPORT INFORMATION
  Report Type: Spontaneous
  Country: JP (occurrence: JP)
  Receive Date: 20230220
  Receipt Date: 20230220
  Transmission Date: 20230417
  Serious: Yes (Hospitalization)
  Sender: FDA-Public Use
  Company Number: JP-FreseniusKabi-FK202301814

PATIENT
  Age: 25 Year
  Sex: Female
  Weight: 64.9 kg

DRUGS (7)
  1. PROPOFOL [Suspect]
     Active Substance: PROPOFOL
     Indication: General anaesthesia
     Dosage: 70 MG AND 30 MG SINGLE DOSE
     Route: 042
     Dates: start: 20230117, end: 20230117
  2. PROPOFOL [Suspect]
     Active Substance: PROPOFOL
     Dosage: 70 MG AND 30 MG SINGLE DOSE
     Route: 042
     Dates: start: 20230117, end: 20230117
  3. FENTANYL [Suspect]
     Active Substance: FENTANYL
     Indication: General anaesthesia
     Route: 042
     Dates: start: 20230117, end: 20230117
  4. ROCURONIUM BROMIDE [Suspect]
     Active Substance: ROCURONIUM BROMIDE
     Indication: General anaesthesia
     Dosage: 50 MG/5 ML
     Route: 042
     Dates: start: 20230117, end: 20230117
  5. REMIFENTANIL [Concomitant]
     Active Substance: REMIFENTANIL
     Indication: General anaesthesia
     Dosage: INTRAVENOUS INJECTION, CONTINUOUS INFUSION?0.3 MCG/K/H
     Route: 042
     Dates: start: 20230117, end: 20230117
  6. SEVOFLURANE [Concomitant]
     Active Substance: SEVOFLURANE
     Indication: General anaesthesia
     Dosage: CONTINUOUS INHALATION OF 1.5 % SEVOFLURANE
     Route: 055
     Dates: start: 20230117, end: 20230117
  7. Physio35 [Concomitant]
     Indication: General anaesthesia
     Dosage: INTRAVENOUS INJECTION
     Route: 042
     Dates: start: 20230117, end: 20230117

REACTIONS (1)
  - Anaphylactic reaction [Recovered/Resolved]

NARRATIVE: CASE EVENT DATE: 20230117
